FAERS Safety Report 10980056 (Version 3)
Quarter: 2015Q2

REPORT INFORMATION
  Report Type: Spontaneous
  Country: US (occurrence: US)
  Receive Date: 20150402
  Receipt Date: 20150525
  Transmission Date: 20150821
  Serious: Yes (Life-Threatening, Hospitalization)
  Sender: FDA-Public Use
  Company Number: US-JNJFOC-20150311883

PATIENT
  Age: 91 Year
  Sex: Female
  Weight: 71 kg

DRUGS (13)
  1. RIVAROXABAN [Suspect]
     Active Substance: RIVAROXABAN
     Indication: CEREBROVASCULAR ACCIDENT PROPHYLAXIS
     Route: 048
  2. ATORVASTATIN [Concomitant]
     Active Substance: ATORVASTATIN
     Route: 065
  3. METOPROLOL TARTRATE. [Concomitant]
     Active Substance: METOPROLOL TARTRATE
     Route: 065
  4. ZOLPIDEM [Concomitant]
     Active Substance: ZOLPIDEM\ZOLPIDEM TARTRATE
     Dosage: 5 MG QHS (ONE AT NIGHT BED TIME)
     Route: 065
  5. DONEPEZIL [Concomitant]
     Active Substance: DONEPEZIL
     Route: 065
  6. LISINOPRIL. [Concomitant]
     Active Substance: LISINOPRIL
     Route: 065
  7. SPIRONOLACTONE. [Concomitant]
     Active Substance: SPIRONOLACTONE
     Dosage: 50 MG QHS(ONE AT NIGHT BED TIME)
     Route: 065
  8. TRAZODONE [Concomitant]
     Active Substance: TRAZODONE HYDROCHLORIDE
     Dosage: 50 MG QHS(ONE AT NIGHT BED TIME)
     Route: 065
  9. ESCITALOPRAM [Concomitant]
     Active Substance: ESCITALOPRAM OXALATE
     Route: 065
  10. LEVOTHYROXINE [Concomitant]
     Active Substance: LEVOTHYROXINE
     Dosage: 75 MCG DAILY
     Route: 065
  11. RIVAROXABAN [Suspect]
     Active Substance: RIVAROXABAN
     Indication: ATRIAL FIBRILLATION
     Route: 048
  12. ASPIRIN. [Concomitant]
     Active Substance: ASPIRIN
     Route: 065
  13. MIRTAZAPINE. [Concomitant]
     Active Substance: MIRTAZAPINE
     Route: 065

REACTIONS (3)
  - Gastric ulcer haemorrhage [Unknown]
  - International normalised ratio increased [Unknown]
  - Blood creatinine increased [Recovered/Resolved]
